FAERS Safety Report 10475449 (Version 1)
Quarter: 2014Q3

REPORT INFORMATION
  Report Type: Spontaneous
  Country: US (occurrence: None)
  Receive Date: 20140924
  Receipt Date: 20140924
  Transmission Date: 20150326
  Serious: Yes (Hospitalization)
  Sender: FDA-Public Use
  Company Number: None

PATIENT
  Age: 28 Year
  Sex: Male
  Weight: 77.6 kg

DRUGS (1)
  1. IBUPROFEN. [Suspect]
     Active Substance: IBUPROFEN
     Indication: TOOTHACHE
     Dosage: 12-24 TABLETS
     Route: 048

REACTIONS (4)
  - Gastritis erosive [None]
  - Haematemesis [None]
  - Accidental overdose [None]
  - Erosive duodenitis [None]

NARRATIVE: CASE EVENT DATE: 20140329
